FAERS Safety Report 7052623-1 (Version None)
Quarter: 2010Q4

REPORT INFORMATION
  Report Type: 
  Country: None (occurrence: None)
  Receive Date: 20101019
  Receipt Date: 20101011
  Transmission Date: 20110411
  Serious: Yes (Death)
  Sender: FDA-Public Use
  Company Number: US-GILEAD-2010-0032464

PATIENT
  Sex: Female
  Weight: 65.83 kg

DRUGS (20)
  1. LETAIRIS [Suspect]
     Indication: PULMONARY ARTERIAL HYPERTENSION
     Route: 048
     Dates: start: 20080627
  2. TYVASO [Concomitant]
     Route: 055
     Dates: start: 20100113
  3. LEVOTHYROXINE [Concomitant]
  4. YLORIC [Concomitant]
  5. RECLAST [Concomitant]
  6. COENZYME [Concomitant]
  7. CLARITIN [Concomitant]
  8. XOPENEX [Concomitant]
  9. SPIRONOLACTONE [Concomitant]
  10. POTASSIUM CHLORIDE [Concomitant]
  11. VITAMIN B-12 [Concomitant]
  12. LOVAZA [Concomitant]
  13. MUCINEX [Concomitant]
  14. INDAPAMIDE [Concomitant]
  15. ADVAIR DISKUS 100/50 [Concomitant]
  16. IRON [Concomitant]
  17. OXYGEN [Concomitant]
  18. TUMS [Concomitant]
  19. ACETAMINOPHEN [Concomitant]
  20. LASIX [Concomitant]

REACTIONS (1)
  - DEATH [None]
